FAERS Safety Report 7651750-5 (Version None)
Quarter: 2011Q3

REPORT INFORMATION
  Report Type: 
  Country: None (occurrence: None)
  Receive Date: 20110802
  Receipt Date: 20110729
  Transmission Date: 20111222
  Serious: Yes (Other)
  Sender: FDA-Public Use
  Company Number: GB-MERCK-1108GBR00004

PATIENT
  Age: 63 Year
  Sex: Female
  Weight: 86 kg

DRUGS (10)
  1. ASPIRIN [Concomitant]
     Route: 065
     Dates: start: 20110420
  2. RILUZOLE [Concomitant]
     Route: 065
     Dates: start: 20110420
  3. TOLTERODINE TARTRATE [Concomitant]
     Route: 065
     Dates: start: 20110420
  4. PRINIVIL [Suspect]
     Route: 048
     Dates: start: 20110707
  5. PAROXETINE [Concomitant]
     Route: 065
     Dates: start: 20110420
  6. SIMVASTATIN [Concomitant]
     Route: 048
     Dates: start: 20110420
  7. NORTRIPTYLINE [Concomitant]
     Route: 065
     Dates: start: 20110420
  8. QUININE [Concomitant]
     Route: 065
     Dates: start: 20110420
  9. AMILORIDE HYDROCHLORIDE AND HYDROCHLOROTHIAZIDE [Concomitant]
     Route: 065
     Dates: start: 20110420
  10. LISINOPRIL [Concomitant]
     Route: 065
     Dates: start: 20110426

REACTIONS (1)
  - BLOOD CREATINE INCREASED [None]
